FAERS Safety Report 15240444 (Version 1)
Quarter: 2018Q3

REPORT INFORMATION
  Report Type: Spontaneous
  Country: HK (occurrence: HK)
  Receive Date: 20180804
  Receipt Date: 20180804
  Transmission Date: 20181010
  Serious: Yes (Other)
  Sender: FDA-Public Use
  Company Number: HK-009507513-1807HKG011643

PATIENT
  Age: 58 Year
  Sex: Male

DRUGS (3)
  1. EZETIMIBE. [Suspect]
     Active Substance: EZETIMIBE
     Indication: TYPE IIA HYPERLIPIDAEMIA
     Route: 048
  2. ROSUVASTATIN. [Suspect]
     Active Substance: ROSUVASTATIN
     Indication: TYPE IIA HYPERLIPIDAEMIA
  3. CHOLESTYRAMINE RESIN [Suspect]
     Active Substance: CHOLESTYRAMINE
     Indication: TYPE IIA HYPERLIPIDAEMIA

REACTIONS (1)
  - Drug ineffective [Unknown]
